FAERS Safety Report 13139185 (Version 2)
Quarter: 2017Q1

REPORT INFORMATION
  Report Type: Report from Study
  Country: BE (occurrence: BE)
  Receive Date: 20170123
  Receipt Date: 20170221
  Transmission Date: 20170428
  Serious: Yes (Other)
  Sender: FDA-Public Use
  Company Number: BE-PFIZER INC-2016377361

PATIENT
  Age: 74 Year
  Sex: Female
  Weight: 88.3 kg

DRUGS (10)
  1. ATORVASTATIN [Concomitant]
     Active Substance: ATORVASTATIN
     Dosage: UNK, 1X/DAY
  2. FASLODEX [Concomitant]
     Active Substance: FULVESTRANT
  3. RIOPAN /00141701/ [Concomitant]
     Active Substance: MAGALDRATE
  4. PALBOCICLIB [Suspect]
     Active Substance: PALBOCICLIB
     Indication: BREAST CANCER METASTATIC
     Dosage: 125 MG, 1X/DAY
     Route: 048
     Dates: start: 20160713, end: 20160727
  5. PALBOCICLIB [Suspect]
     Active Substance: PALBOCICLIB
     Dosage: 75 MG, 1X/DAY
     Route: 048
     Dates: start: 20161227, end: 20170117
  6. AROMASIN [Concomitant]
     Active Substance: EXEMESTANE
     Dosage: UNK, 1X/DAY
  7. EFEXOR XL [Concomitant]
     Active Substance: VENLAFAXINE HYDROCHLORIDE
     Dosage: UNK, 1X/DAY
  8. PALBOCICLIB [Suspect]
     Active Substance: PALBOCICLIB
     Dosage: 100 MG, UNK
     Route: 048
     Dates: start: 20160810, end: 20160824
  9. PALBOCICLIB [Suspect]
     Active Substance: PALBOCICLIB
     Dosage: 75 MG, 1X/DAY
     Route: 048
     Dates: start: 20160916, end: 20161220
  10. ISOTEN [Concomitant]
     Dosage: 2.5 MG, 1X/DAY

REACTIONS (5)
  - Constipation [Unknown]
  - Thrombocytopenia [Recovered/Resolved]
  - Omphalitis [Unknown]
  - Asthenia [Not Recovered/Not Resolved]
  - Neutropenia [Recovered/Resolved]

NARRATIVE: CASE EVENT DATE: 20160727
